FAERS Safety Report 6565968-6 (Version None)
Quarter: 2010Q1

REPORT INFORMATION
  Report Type: 
  Country: None (occurrence: None)
  Receive Date: 20100129
  Receipt Date: 20100129
  Transmission Date: 20100710
  Serious: Yes (Hospitalization)
  Sender: FDA-Public Use
  Company Number: None

PATIENT
  Age: 83 Year
  Sex: Male
  Weight: 94 kg

DRUGS (2)
  1. CEFUROXIME [Suspect]
     Dosage: 500 MG BID PO
     Route: 048
     Dates: start: 20091207, end: 20091218
  2. AZITHROMYCIN [Suspect]
     Dosage: 250 MG EVERY DAY PO
     Route: 048
     Dates: start: 20091207, end: 20091212

REACTIONS (3)
  - CLOSTRIDIUM DIFFICILE COLITIS [None]
  - DEHYDRATION [None]
  - PNEUMONIA [None]
